FAERS Safety Report 8147954 (Version 2)
Quarter: 2012Q4

REPORT INFORMATION
  Report Type: 
  Country: US (occurrence: US)
  Receive Date: 20110922
  Receipt Date: 20121004
  Transmission Date: 20130627
  Serious: No
  Sender: FDA-Public Use
  Company Number: US-ASTRAZENECA-2010SE61467

PATIENT
  Age: 50 Year
  Sex: Female
  Weight: 63.5 kg

DRUGS (7)
  1. SEROQUEL [Suspect]
     Indication: BIPOLAR I DISORDER
     Route: 048
     Dates: start: 2007
  2. SEROQUEL [Suspect]
     Indication: BIPOLAR DISORDER
     Route: 048
     Dates: start: 2007
  3. SEROQUEL [Suspect]
     Indication: BIPOLAR I DISORDER
     Route: 048
     Dates: start: 2007, end: 20101222
  4. SEROQUEL [Suspect]
     Indication: BIPOLAR DISORDER
     Route: 048
     Dates: start: 2007, end: 20101222
  5. PAXIL [Concomitant]
     Indication: DEPRESSION
  6. RESTORIL [Concomitant]
     Indication: POST-TRAUMATIC STRESS DISORDER
  7. DIAZEPAM [Concomitant]
     Indication: ANXIETY

REACTIONS (8)
  - Chest pain [Recovered/Resolved]
  - Anxiety [Recovered/Resolved]
  - Panic attack [Unknown]
  - Amnesia [Unknown]
  - Anxiety disorder [Unknown]
  - Bipolar disorder [Unknown]
  - Post-traumatic stress disorder [Unknown]
  - Drug dose omission [Unknown]
